FAERS Safety Report 12048065 (Version 1)
Quarter: 2016Q1

REPORT INFORMATION
  Report Type: Spontaneous
  Country: US (occurrence: None)
  Receive Date: 20160208
  Receipt Date: 20160208
  Transmission Date: 20160526
  Serious: No
  Sender: FDA-Public Use
  Company Number: None

PATIENT
  Age: 26 Year
  Sex: Male
  Weight: 61 kg

DRUGS (1)
  1. UNISOM SLEEPTABS [Suspect]
     Active Substance: DOXYLAMINE SUCCINATE
     Indication: SLEEP DISORDER
     Dosage: HALF TABLET ONCE DAILY TAKEN BY MOUTH
     Route: 048
     Dates: start: 20160204

REACTIONS (2)
  - Heart sounds abnormal [None]
  - Intentional product use issue [None]

NARRATIVE: CASE EVENT DATE: 20160205
